FAERS Safety Report 11327548 (Version 1)
Quarter: 2015Q3

REPORT INFORMATION
  Report Type: Spontaneous
  Country: US (occurrence: None)
  Receive Date: 20150629
  Receipt Date: 20150629
  Transmission Date: 20151125
  Serious: Yes (Hospitalization)
  Sender: FDA-Public Use
  Company Number: A-NJ2014-109473

PATIENT
  Age: 64 Year
  Sex: Female

DRUGS (13)
  1. DIGOXIN (BETA-ACETYLDIGOXIN) [Concomitant]
     Active Substance: .BETA.-ACETYLDIGOXIN
  2. LASIX (FUROSEMDIE SODIUM) [Concomitant]
  3. PROLIA [Concomitant]
     Active Substance: DENOSUMAB
  4. SINGULAIR (MONTELUKAST SODIUM) [Concomitant]
  5. OPSUMIT [Suspect]
     Active Substance: MACITENTAN
     Indication: COR PULMONALE CHRONIC
     Route: 048
     Dates: start: 20140304
  6. ATORVASTATIN [Concomitant]
     Active Substance: ATORVASTATIN
  7. XOPENEX (LEVOSALBUTAMOL HYDROCHLORIDE) [Concomitant]
  8. ATROVENT [Concomitant]
     Active Substance: IPRATROPIUM BROMIDE
  9. EFFEXOR [Concomitant]
     Active Substance: VENLAFAXINE HYDROCHLORIDE
  10. ZYRTEC [Concomitant]
     Active Substance: CETIRIZINE HYDROCHLORIDE
  11. SYNTHROID [Concomitant]
     Active Substance: LEVOTHYROXINE SODIUM
  12. SILDENAFIL. [Concomitant]
     Active Substance: SILDENAFIL
  13. ANASTROZOLE. [Concomitant]
     Active Substance: ANASTROZOLE

REACTIONS (1)
  - Catheterisation cardiac abnormal [None]

NARRATIVE: CASE EVENT DATE: 20141118
